FAERS Safety Report 16119540 (Version 1)
Quarter: 2019Q1

REPORT INFORMATION
  Report Type: Spontaneous
  Country: FR (occurrence: FR)
  Receive Date: 20190326
  Receipt Date: 20190326
  Transmission Date: 20190418
  Serious: Yes (Other)
  Sender: FDA-Public Use
  Company Number: PHHY2019FR063096

PATIENT
  Age: 70 Year
  Sex: Female
  Weight: 57 kg

DRUGS (4)
  1. PACLITAXEL. [Suspect]
     Active Substance: PACLITAXEL
     Indication: OVARIAN CANCER
     Dosage: 1 DF, QW (CURE HEBDOMADAIRE)
     Route: 041
     Dates: start: 201210, end: 201301
  2. PACLITAXEL. [Suspect]
     Active Substance: PACLITAXEL
     Dosage: CURE HEBDOMADAIRE
     Route: 041
     Dates: start: 201210, end: 201301
  3. CARBOPLATINE [Suspect]
     Active Substance: CARBOPLATIN
     Indication: OVARIAN CANCER
     Dosage: 1 DF, TOTAL (AU TOTAL 3 CURES)
     Route: 041
     Dates: start: 201210, end: 201301
  4. CARBOPLATINE [Suspect]
     Active Substance: CARBOPLATIN
     Dosage: AU TOTAL 3 CURES
     Route: 041
     Dates: start: 201210, end: 201301

REACTIONS (4)
  - Asthenia [Not Recovered/Not Resolved]
  - Insomnia [Not Recovered/Not Resolved]
  - Nausea [Not Recovered/Not Resolved]
  - Anxiety [Not Recovered/Not Resolved]

NARRATIVE: CASE EVENT DATE: 201210
